FAERS Safety Report 6313632-0 (Version None)
Quarter: 2009Q3

REPORT INFORMATION
  Report Type: 
  Country: None (occurrence: None)
  Receive Date: 20090818
  Receipt Date: 20090810
  Transmission Date: 20100115
  Serious: Yes (Hospitalization)
  Sender: FDA-Public Use
  Company Number: US-KINGPHARMUSA00001-K200900952

PATIENT
  Age: 56 Year
  Sex: Male

DRUGS (10)
  1. ALTACE [Suspect]
     Dosage: 10 MG, QD
     Route: 048
     Dates: end: 20090714
  2. PLAVIX [Suspect]
     Dosage: UNK
     Route: 048
     Dates: end: 20090714
  3. SPIRONOLACTONE [Suspect]
     Dosage: 25 MG, QD
     Route: 048
     Dates: end: 20090714
  4. CRESTOR [Suspect]
     Dosage: UNK
     Route: 048
     Dates: end: 20090714
  5. METFORMIN HCL [Suspect]
     Dosage: UNK
     Route: 048
     Dates: end: 20090714
  6. SITAGLIPTIN [Suspect]
     Dosage: UNK
     Route: 048
     Dates: end: 20090714
  7. BISOPROLOL [Suspect]
     Dosage: UNK
     Route: 048
     Dates: end: 20090714
  8. FLUOXETINE [Suspect]
     Dosage: UNK
     Route: 048
     Dates: end: 20090714
  9. ATARAX [Concomitant]
  10. INIPOMP [Concomitant]

REACTIONS (3)
  - DEHYDRATION [None]
  - RENAL FAILURE ACUTE [None]
  - VOMITING [None]
